FAERS Safety Report 7547186-8 (Version None)
Quarter: 2011Q2

REPORT INFORMATION
  Report Type: 
  Country: None (occurrence: None)
  Receive Date: 20110614
  Receipt Date: 20110603
  Transmission Date: 20111010
  Serious: Yes (Other)
  Sender: FDA-Public Use
  Company Number: PHHY2011BR26462

PATIENT
  Sex: Male
  Weight: 105 kg

DRUGS (3)
  1. RITALIN [Suspect]
     Indication: ATTENTION DEFICIT/HYPERACTIVITY DISORDER
     Dosage: 1 DF, DAILY
     Route: 048
  2. RITALIN LA [Suspect]
     Indication: ATTENTION DEFICIT/HYPERACTIVITY DISORDER
     Dosage: 1 DF, DAILY
     Route: 048
  3. RITALIN [Suspect]
     Dosage: 2 DF, DAILY
     Route: 048

REACTIONS (4)
  - WEIGHT INCREASED [None]
  - DRUG INEFFECTIVE [None]
  - IRRITABILITY [None]
  - HUNGER [None]
